FAERS Safety Report 5460249-6 (Version None)
Quarter: 2007Q3

REPORT INFORMATION
  Report Type: 
  Country: None (occurrence: None)
  Receive Date: 20070919
  Receipt Date: 20070605
  Transmission Date: 20080115
  Serious: No
  Sender: FDA-Public Use
  Company Number: US-ASTRAZENECA-2007UW13521

PATIENT
  Age: 53 Year
  Sex: Male

DRUGS (2)
  1. SEROQUEL [Suspect]
     Indication: BIPOLAR I DISORDER
     Route: 048
  2. LITHIUM [Concomitant]

REACTIONS (3)
  - APATHY [None]
  - DEPRESSION [None]
  - PSYCHIATRIC SYMPTOM [None]
